FAERS Safety Report 8318717 (Version 3)
Quarter: 2013Q1

REPORT INFORMATION
  Report Type: Spontaneous
  Country: US (occurrence: US)
  Receive Date: 20120103
  Receipt Date: 20130221
  Transmission Date: 20140127
  Serious: Yes (Life-Threatening, Congenital Anomaly, Other)
  Sender: FDA-Public Use
  Company Number: US-PFIZER INC-2011289530

PATIENT
  Sex: Male
  Weight: 3.54 kg

DRUGS (13)
  1. ZOLOFT [Suspect]
     Dosage: UNK
     Route: 064
     Dates: start: 2001, end: 2012
  2. SERTRALINE HCL [Suspect]
     Dosage: UNK
     Route: 064
  3. NITROFURANTOIN [Concomitant]
     Dosage: 100 MG, 2X/DAY
     Route: 064
     Dates: start: 20100512
  4. PHENAZOPYRIDINE [Concomitant]
     Dosage: 100 MG, 3X/DAY
     Route: 064
     Dates: start: 20100525
  5. SULFAMETHOXAZOLE W/TRIMETHOPRIM [Concomitant]
     Dosage: 400-80MG ONE TABLET
     Route: 064
     Dates: start: 20100525
  6. SERTRALINE [Concomitant]
     Dosage: 50 MG, 1X/DAY
     Route: 064
     Dates: start: 20100525
  7. CYMBALTA [Concomitant]
     Dosage: UNK
     Route: 064
  8. TUMS [Concomitant]
     Dosage: UNK
     Route: 064
  9. BENADRYL [Concomitant]
     Dosage: UNK
     Route: 064
  10. VINATE PN CARE [Concomitant]
     Dosage: UNK
     Route: 064
  11. HYDROXYCHLOROQUINE [Concomitant]
     Dosage: UNK
     Route: 064
  12. METHYLPREDNISOLONE [Concomitant]
     Dosage: UNK
     Route: 064
  13. MACROBID [Concomitant]
     Dosage: UNK
     Route: 064

REACTIONS (2)
  - Maternal exposure timing unspecified [Unknown]
  - Ventricular septal defect [Unknown]
